FAERS Safety Report 20086510 (Version 1)
Quarter: 2021Q4

REPORT INFORMATION
  Report Type: Spontaneous
  Country: HR (occurrence: HR)
  Receive Date: 20211118
  Receipt Date: 20211118
  Transmission Date: 20220303
  Serious: Yes (Other)
  Sender: FDA-Public Use
  Company Number: None

PATIENT
  Age: 30 Year
  Sex: Female

DRUGS (14)
  1. NORVASC [Suspect]
     Active Substance: AMLODIPINE BESYLATE
     Dosage: 50 MG, 1X/DAY (10 TABLETS OF 50 MG)
     Route: 048
     Dates: start: 20210616, end: 20210616
  2. ACETAMINOPHEN [Suspect]
     Active Substance: ACETAMINOPHEN
     Dosage: 8500 MG (17 TABLETS OF 500 MG), 1X/DAY
     Route: 048
     Dates: start: 20210616, end: 20210616
  3. ACETAMINOPHEN\TRAMADOL HYDROCHLORIDE [Suspect]
     Active Substance: ACETAMINOPHEN\TRAMADOL HYDROCHLORIDE
     Dosage: 9 DF, 1X/DAY
     Route: 048
     Dates: start: 20210616, end: 20210616
  4. NAPROXEN SODIUM [Suspect]
     Active Substance: NAPROXEN SODIUM
     Dosage: 20 DF (20 TABLETS)
     Route: 048
     Dates: start: 20210616, end: 20210616
  5. GLICLAZIDE [Suspect]
     Active Substance: GLICLAZIDE
     Dosage: 1800 MG (30 TABLETS OF 60 MG), 1X/DAY
     Route: 048
     Dates: start: 20210616, end: 20210616
  6. FLUPHENAZINE HYDROCHLORIDE [Suspect]
     Active Substance: FLUPHENAZINE HYDROCHLORIDE
     Dosage: 500 MG (2X100 TABLETS (2 EMPTY BOTTLES) OF 2.5 MG), 1X/DAY
     Route: 048
     Dates: start: 20210616, end: 20210616
  7. LINAGLIPTIN [Suspect]
     Active Substance: LINAGLIPTIN
     Dosage: 50 MG (10 TABLETS OF 5 MG), 1X/DAY
     Route: 048
     Dates: start: 20210616, end: 20210616
  8. NORMABEL [Suspect]
     Active Substance: DIAZEPAM
     Dosage: 150 MG (30 TABLETS OF 5MG), 1X/DAY
     Route: 048
     Dates: start: 20210616, end: 20210616
  9. LORATADINE [Suspect]
     Active Substance: LORATADINE
     Dosage: 300 MG (30 TABLETS OF 10 MG), 1X/DAY
     Route: 048
     Dates: start: 20210616, end: 20210616
  10. ALPRAZOLAM [Suspect]
     Active Substance: ALPRAZOLAM
     Dosage: 12.5 MG (25 TABLETS OF 0.5 MG), 1X/DAY
     Route: 048
     Dates: start: 20210616, end: 20210616
  11. AMLODIPINE\RAMIPRIL [Suspect]
     Active Substance: AMLODIPINE\RAMIPRIL
     Dosage: 30 DF, 1X/DAY
     Route: 048
     Dates: start: 20210616, end: 20210616
  12. KETOPROFEN [Suspect]
     Active Substance: KETOPROFEN
     Dosage: UNK
     Route: 048
     Dates: start: 20210616, end: 20210616
  13. OLANZAPINE [Suspect]
     Active Substance: OLANZAPINE
     Dosage: 370 MG (37 TABLETS OF 10 MG), 1X/DAY
     Route: 048
     Dates: start: 20210616, end: 20210616
  14. ZYPADHERA [Concomitant]
     Active Substance: OLANZAPINE PAMOATE
     Dosage: UNK
     Route: 030
     Dates: start: 2021

REACTIONS (8)
  - Intentional overdose [Unknown]
  - Suicide attempt [Unknown]
  - Coma [Unknown]
  - Hypoglycaemia [Unknown]
  - Hypotension [Unknown]
  - Pneumonia [Unknown]
  - Somnolence [Unknown]
  - Haemodynamic instability [Unknown]

NARRATIVE: CASE EVENT DATE: 20210601
